FAERS Safety Report 8000803-0 (Version None)
Quarter: 2011Q4

REPORT INFORMATION
  Report Type: 
  Country: None (occurrence: None)
  Receive Date: 20111214
  Receipt Date: 20111202
  Transmission Date: 20120403
  Serious: Yes (Hospitalization)
  Sender: FDA-Public Use
  Company Number: TCI2011A06087

PATIENT
  Age: 77 Year
  Sex: Male

DRUGS (9)
  1. ACTOS [Suspect]
     Indication: DIABETES MELLITUS
     Dosage: 15 MG (15 MG,1 IN 1 D) PER ORAL
     Route: 048
     Dates: start: 20060214, end: 20111128
  2. ASPIRIN [Concomitant]
  3. SIMVASTATIN [Concomitant]
  4. ARTIST (CARVEDILOL) [Concomitant]
  5. EBASTINE [Concomitant]
  6. ZOLPIDEM TARTRATE [Concomitant]
  7. ACECOL (TEMOCAPRIL HYDROCHLORIDE) [Concomitant]
  8. GLIMICRON (GLICLAZIDE) [Concomitant]
  9. METGLUCO (METFORMIN HYDROCHLORIDE) [Concomitant]

REACTIONS (1)
  - BLADDER CANCER [None]
